FAERS Safety Report 5447152-2 (Version None)
Quarter: 2007Q3

REPORT INFORMATION
  Report Type: 
  Country: None (occurrence: None)
  Receive Date: 20070910
  Receipt Date: 20070904
  Transmission Date: 20080115
  Serious: Yes (Hospitalization)
  Sender: FDA-Public Use
  Company Number: PHEH2007US10462

PATIENT
  Age: 36 Year
  Sex: Female

DRUGS (6)
  1. DIOVAN [Suspect]
     Indication: RENAL TUBULAR ACIDOSIS
     Dosage: 80 MG, QD
     Route: 048
     Dates: start: 20070603, end: 20070624
  2. DIOVAN [Suspect]
     Dosage: 40 MG, QD
     Route: 048
     Dates: start: 20070625, end: 20070627
  3. ESTRADIOL [Concomitant]
  4. LEVOXYL [Concomitant]
  5. ABILIFY [Concomitant]
  6. PAXIL [Concomitant]

REACTIONS (6)
  - BLOOD CREATININE INCREASED [None]
  - BRADYCARDIA [None]
  - DIZZINESS [None]
  - FALL [None]
  - HYPOTENSION [None]
  - PYREXIA [None]
